FAERS Safety Report 7443189-2 (Version None)
Quarter: 2011Q2

REPORT INFORMATION
  Report Type: 
  Country: None (occurrence: None)
  Receive Date: 20110428
  Receipt Date: 20110421
  Transmission Date: 20111010
  Serious: Yes (Hospitalization)
  Sender: FDA-Public Use
  Company Number: B0609666A

PATIENT
  Sex: Female
  Weight: 61 kg

DRUGS (2)
  1. XELODA [Suspect]
     Route: 048
     Dates: start: 20090924
  2. TYKERB [Suspect]
     Indication: BREAST CANCER
     Dosage: 1250MG PER DAY
     Route: 048
     Dates: start: 20090924, end: 20091126

REACTIONS (5)
  - HYPERCAPNIA [None]
  - INTERSTITIAL LUNG DISEASE [None]
  - HYPOCAPNIA [None]
  - DYSPNOEA [None]
  - HYPOXIA [None]
